FAERS Safety Report 15984568 (Version 1)
Quarter: 2019Q1

REPORT INFORMATION
  Report Type: Report from Study
  Country: IN (occurrence: IN)
  Receive Date: 20190220
  Receipt Date: 20190220
  Transmission Date: 20190418
  Serious: Yes (Death, Other)
  Sender: FDA-Public Use
  Company Number: IN-ASTELLAS-2019US005911

PATIENT

DRUGS (1)
  1. AMPHOTERICIN B, LIPOSOME [Suspect]
     Active Substance: AMPHOTERICIN B
     Indication: GASTROINTESTINAL FUNGAL INFECTION
     Dosage: UNK UNK, UNKNOWN FREQ.
     Route: 065

REACTIONS (2)
  - Off label use [Unknown]
  - Drug ineffective [Fatal]
